FAERS Safety Report 15734327 (Version 1)
Quarter: 2018Q4

REPORT INFORMATION
  Report Type: Spontaneous
  Country: GB (occurrence: GB)
  Receive Date: 20181218
  Receipt Date: 20181218
  Transmission Date: 20190205
  Serious: Yes (Disabling)
  Sender: FDA-Public Use
  Company Number: GB-PFIZER INC-2009253908

PATIENT
  Age: 73 Year
  Sex: Male
  Weight: 81.6 kg

DRUGS (7)
  1. CARBOPLATIN. [Suspect]
     Active Substance: CARBOPLATIN
     Dosage: 660 MG, UNK
     Route: 042
     Dates: start: 20090410, end: 20090425
  2. HYDROXOCOBALAMIN [Concomitant]
     Active Substance: HYDROXOCOBALAMIN
     Indication: SUPPORTIVE CARE
     Dosage: 1 MG, UNK EVERY 9 WEEKS
     Route: 030
     Dates: start: 20090403
  3. METOCLOPRAMIDE. [Concomitant]
     Active Substance: METOCLOPRAMIDE
     Indication: SUPPORTIVE CARE
     Dosage: 10 MG, AS NEEDED (THREE TIMES PER DAY AS NECESSARY)
     Route: 048
     Dates: start: 20090410, end: 20090617
  4. DEXAMETHASONE. [Concomitant]
     Active Substance: DEXAMETHASONE
     Indication: SUPPORTIVE CARE
     Dosage: 4 MG, DAILY
     Route: 048
     Dates: start: 20090409, end: 20090617
  5. ONDANSETRON [Concomitant]
     Active Substance: ONDANSETRON
     Indication: SUPPORTIVE CARE
     Dosage: 8 MG, UNK
     Route: 042
     Dates: start: 20090410, end: 20090616
  6. FOLIC ACID. [Concomitant]
     Active Substance: FOLIC ACID
     Indication: SUPPORTIVE CARE
     Dosage: 400 UG, DAILY
     Route: 048
     Dates: start: 20090403
  7. PEMETREXED. [Suspect]
     Active Substance: PEMETREXED
     Indication: MESOTHELIOMA
     Dosage: 1000 MG, UNK
     Route: 042
     Dates: start: 20090410, end: 20090716

REACTIONS (2)
  - Abdominal pain upper [Recovered/Resolved]
  - Flushing [Recovered/Resolved]

NARRATIVE: CASE EVENT DATE: 20090625
